FAERS Safety Report 5590824-X (Version None)
Quarter: 2008Q1

REPORT INFORMATION
  Report Type: 
  Country: None (occurrence: None)
  Receive Date: 20080110
  Receipt Date: 20071227
  Transmission Date: 20080703
  Serious: Yes (Life-Threatening, Hospitalization)
  Sender: FDA-Public Use
  Company Number: DSJ-2007-11170

PATIENT
  Age: 74 Year
  Sex: Female
  Weight: 49 kg

DRUGS (16)
  1. OLMESARTAN MEDOXOMIL [Suspect]
     Indication: HYPERTENSION
     Dosage: 20 MG (20 MG, 1 IN 1 D), PER ORAL
     Route: 048
     Dates: start: 20071119, end: 20071128
  2. SHIOSOL (SODIUM AUROTHIOMALATE) (INJECTION) (SODIUM AUROTHIOMALATE) [Suspect]
     Indication: RHEUMATOID ARTHRITIS
     Dosage: 1A/2 WEEKS, INTRAMUSCULAR
     Route: 030
     Dates: start: 20071102, end: 20071102
  3. SHIOSOL (SODIUM AUROTHIOMALATE) (INJECTION) (SODIUM AUROTHIOMALATE) [Suspect]
     Indication: RHEUMATOID ARTHRITIS
     Dosage: 1A/2 WEEKS, INTRAMUSCULAR
     Route: 030
     Dates: start: 20071116, end: 20071116
  4. TAKEPRON (LANSOPRAZOLE) (TABLET) (LANSOPRAZOLE) [Concomitant]
  5. LORFENAMIN (LOXOPROFEN SODIUM) (TABLET) (LOXOPROFEN SODIUM) [Concomitant]
  6. GOODMIN (BROTIZOLAM) (TABLET) (BROTIZOLALM) [Concomitant]
  7. MYSLEE (ZOLPIDEM TARTRATE) (TABLET) (ZOLPIDEM TARTRATE) [Concomitant]
  8. ROHYPNOL (FLUNITRAZEPAM) (TABLET) (FLUNITRAZEPAM) [Concomitant]
  9. PURSENNID (SENNA ALEXANDRINA LEAF) (TABLET) (SENNA ALEXANDRINA LEAF) [Concomitant]
  10. INTEBAN (INDOMETHACIN) (SUPPOSITORY) (INDOMETHACIN) [Concomitant]
  11. DAIKENTYUTO (HERBAL EXTRACT NOS) (GRANULES) (HERBAL EXTRACT NOS) [Concomitant]
  12. URSO (URSODEOXYCHOLIC ACID) (GRANULES) (URSODEOXYCHOLIC ACID) [Concomitant]
  13. ONEALFA (ALFACALCIDOL) (TABLET)(ALFACALCIDOL) [Concomitant]
  14. GASMOTIN (MOSAPRIDE CITRATE) (TABLET) (MOSAPRIDE CITRATE) [Concomitant]
  15. KENACORT (TRIAMCINOLONE ACETONIDE) (INJECTION) (TRIAMCINOLONE ACETONID [Concomitant]
  16. ROCAIN (PROCAINE HYDROCHLORIDE) (INJECTION) (PROCAINE HYDROCHLORIDE) [Concomitant]

REACTIONS (3)
  - NEUTROPENIA [None]
  - PYREXIA [None]
  - WHITE BLOOD CELL COUNT DECREASED [None]
